FAERS Safety Report 4509040-5 (Version None)
Quarter: 2004Q4

REPORT INFORMATION
  Report Type: 
  Country: None (occurrence: None)
  Receive Date: 20041122
  Receipt Date: 20041122
  Transmission Date: 20050328
  Serious: Yes (Life-Threatening, Hospitalization)
  Sender: FDA-Public Use
  Company Number: None

PATIENT
  Age: 56 Year
  Sex: Female
  Weight: 63.5036 kg

DRUGS (2)
  1. CELEBREX [Suspect]
     Indication: ARTHRITIS
     Dosage: 1 DAILY ORIGINAL
     Dates: start: 20040701, end: 20040920
  2. CELEBREX [Suspect]
     Indication: CERVICAL SPINAL STENOSIS
     Dosage: 1 DAILY ORIGINAL
     Dates: start: 20040701, end: 20040920

REACTIONS (4)
  - CARDIAC DISORDER [None]
  - CHEST PAIN [None]
  - HEART RATE INCREASED [None]
  - OESOPHAGEAL PAIN [None]
